FAERS Safety Report 13214639 (Version 1)
Quarter: 2017Q1

REPORT INFORMATION
  Report Type: Spontaneous
  Country: DE (occurrence: DE)
  Receive Date: 20170210
  Receipt Date: 20170210
  Transmission Date: 20170428
  Serious: Yes (Other)
  Sender: FDA-Public Use
  Company Number: DE-ABBVIE-17P-062-1870708-00

PATIENT
  Sex: Female

DRUGS (1)
  1. ENANTONE MONATS-DEPOT [Suspect]
     Active Substance: LEUPROLIDE ACETATE
     Indication: PRECOCIOUS PUBERTY
     Dosage: 3.75 MG, MONTHLY
     Route: 065

REACTIONS (1)
  - Teratoma [Unknown]
